FAERS Safety Report 7305567-1 (Version None)
Quarter: 2011Q1

REPORT INFORMATION
  Report Type: 
  Country: None (occurrence: None)
  Receive Date: 20110209
  Receipt Date: 20110125
  Transmission Date: 20110831
  Serious: Yes (Hospitalization)
  Sender: FDA-Public Use
  Company Number: AUR-APL-2011-00323

PATIENT
  Age: 84 Year
  Sex: Male
  Weight: 78.5 kg

DRUGS (16)
  1. IRON [Concomitant]
  2. PROSCAR [Concomitant]
  3. NORVASC [Concomitant]
  4. IBANDRONATE SODIUM [Concomitant]
  5. METOPROLOL [Suspect]
     Indication: HYPERTENSION
     Dosage: 12.5MG - BID - ORAL
     Route: 048
     Dates: start: 20090101
  6. ASPIRIN [Concomitant]
  7. CHONDROITIN/GLUCOSAMINE [Concomitant]
  8. PREGABALIN [Suspect]
     Indication: DIABETIC NEUROPATHY
     Dosage: 300MG - TID- ORAL
     Route: 048
     Dates: start: 20101203
  9. ACCUPRIL [Concomitant]
  10. VYTORIN [Concomitant]
  11. CALCIUM [Concomitant]
  12. CALCIUM CARBONATE [Concomitant]
  13. METFORMIN [Concomitant]
  14. HYDROCHLOROTHIAZIDE [Concomitant]
  15. CALCITRIOL [Concomitant]
  16. MULTI-VITAMINS [Concomitant]

REACTIONS (4)
  - HYPOTENSION [None]
  - DEHYDRATION [None]
  - TREMOR [None]
  - BRADYCARDIA [None]
